FAERS Safety Report 12991070 (Version 1)
Quarter: 2016Q4

REPORT INFORMATION
  Report Type: Spontaneous
  Country: US (occurrence: US)
  Receive Date: 20161201
  Receipt Date: 20161201
  Transmission Date: 20170207
  Serious: No
  Sender: FDA-Public Use
  Company Number: US-TEVA-710163USA

PATIENT
  Age: 58 Year
  Sex: Female

DRUGS (2)
  1. PROVIGIL [Suspect]
     Active Substance: MODAFINIL
     Indication: DEPRESSED LEVEL OF CONSCIOUSNESS
     Dates: start: 201610, end: 2016
  2. PROVIGIL [Suspect]
     Active Substance: MODAFINIL
     Indication: FATIGUE

REACTIONS (3)
  - Drug ineffective [Unknown]
  - Product substitution issue [Unknown]
  - Alopecia [Unknown]

NARRATIVE: CASE EVENT DATE: 201610
